FAERS Safety Report 9664809 (Version 1)
Quarter: 2013Q4

REPORT INFORMATION
  Report Type: Spontaneous
  Country: US (occurrence: US)
  Receive Date: 20131101
  Receipt Date: 20131101
  Transmission Date: 20140711
  Serious: No
  Sender: FDA-Public Use
  Company Number: US-GLAXOSMITHKLINE-A1032653A

PATIENT
  Sex: Male

DRUGS (5)
  1. RYTHMOL SR [Suspect]
     Indication: ATRIAL FIBRILLATION
     Dosage: 225MG TWICE PER DAY
     Route: 048
     Dates: start: 20130620
  2. METOPROLOL [Concomitant]
  3. PRADAXA [Concomitant]
  4. ACCUPRIL [Concomitant]
  5. LIPITOR [Concomitant]

REACTIONS (4)
  - Pollakiuria [Not Recovered/Not Resolved]
  - Urine flow decreased [Unknown]
  - Dysuria [Unknown]
  - Dysuria [Unknown]
